FAERS Safety Report 21696681 (Version 2)
Quarter: 2024Q1

REPORT INFORMATION
  Report Type: Report from Study
  Country: CN (occurrence: CN)
  Receive Date: 20221207
  Receipt Date: 20240104
  Transmission Date: 20240410
  Serious: Yes (Other)
  Sender: FDA-Public Use
  Company Number: CN-SUN PHARMACEUTICAL INDUSTRIES LTD-2022R1-367744

PATIENT
  Age: 15 Year

DRUGS (2)
  1. DILTIAZEM [Suspect]
     Active Substance: DILTIAZEM
     Indication: Pulmonary arterial hypertension
     Dosage: 120 MILLIGRAM, DAILY
     Route: 048
  2. DILTIAZEM [Suspect]
     Active Substance: DILTIAZEM
     Indication: Heritable pulmonary arterial hypertension

REACTIONS (2)
  - Atrioventricular block second degree [Unknown]
  - Hypotension [Unknown]
